FAERS Safety Report 6522453-5 (Version None)
Quarter: 2009Q4

REPORT INFORMATION
  Report Type: 
  Country: None (occurrence: None)
  Receive Date: 20091229
  Receipt Date: 20091229
  Transmission Date: 20100525
  Serious: Yes (Hospitalization)
  Sender: FDA-Public Use
  Company Number: None

PATIENT
  Sex: Female
  Weight: 62.5964 kg

DRUGS (2)
  1. PEGASYS [Suspect]
     Indication: HEPATITIS C
     Dosage: 180 MCG PREFILLED SYRINGE WEEKLY SQ
     Route: 058
     Dates: start: 20091110, end: 20091210
  2. RIBAVIRIN [Suspect]
     Indication: HEPATITIS C
     Dosage: 1000MG DAILY PO
     Route: 048
     Dates: start: 20091110, end: 20091210

REACTIONS (5)
  - ANAEMIA [None]
  - DYSPHAGIA [None]
  - EPIGLOTTITIS [None]
  - HYPOKALAEMIA [None]
  - OROPHARYNGEAL PAIN [None]
